FAERS Safety Report 16998011 (Version 1)
Quarter: 2019Q4

REPORT INFORMATION
  Report Type: Spontaneous
  Country: US (occurrence: US)
  Receive Date: 20191105
  Receipt Date: 20191105
  Transmission Date: 20200122
  Serious: No
  Sender: FDA-Public Use
  Company Number: US-RADIUS HEALTH INC.-2019US003250

PATIENT
  Sex: Female

DRUGS (2)
  1. TYMLOS [Suspect]
     Active Substance: ABALOPARATIDE
     Indication: OSTEOPOROSIS POSTMENOPAUSAL
     Dosage: 80 MCG, QD
     Route: 058
     Dates: start: 201901, end: 20190808
  2. TYMLOS [Suspect]
     Active Substance: ABALOPARATIDE
     Dosage: 80 MCG, 3 DAYS A WEEK
     Route: 058
     Dates: start: 201908

REACTIONS (5)
  - Blood pressure abnormal [Recovered/Resolved]
  - Impaired healing [Unknown]
  - Blood calcium increased [Unknown]
  - Dyspepsia [Recovered/Resolved]
  - Blood potassium decreased [Unknown]
